FAERS Safety Report 8766973 (Version 1)
Quarter: 2012Q4

REPORT INFORMATION
  Report Type: 
  Country: US (occurrence: US)
  Receive Date: 20120903
  Receipt Date: 20120903
  Transmission Date: 20130627
  Serious: No
  Sender: FDA-Public Use
  Company Number: US-BAYER-2012-088189

PATIENT
  Age: 68 Year
  Sex: Female

DRUGS (1)
  1. CLIMARA [Suspect]
     Dosage: UNK
     Route: 062
     Dates: start: 2007

REACTIONS (2)
  - Application site vesicles [None]
  - Application site pruritus [None]
